FAERS Safety Report 5983935-8 (Version None)
Quarter: 2008Q4

REPORT INFORMATION
  Report Type: 
  Country: None (occurrence: None)
  Receive Date: 20081208
  Receipt Date: 20081126
  Transmission Date: 20090506
  Serious: Yes (Hospitalization)
  Sender: FDA-Public Use
  Company Number: SE-ROCHE-596540

PATIENT

DRUGS (4)
  1. CAPECITABINE [Suspect]
     Dosage: ROUTE AND THERAPY DETAILS CAPTURED AS PER PROTOCOL.
     Route: 048
     Dates: start: 20081016, end: 20081110
  2. BEVACIZUMAB [Suspect]
     Dosage: FORM: INFUSION. ROUTE, FREQ. AND FORM CODED AS PER PROTOCOL, LAST DOSE TAKEN ON 20 NOVEMBER 2008.
     Route: 042
     Dates: start: 20081106
  3. ERLOTINIB [Suspect]
     Dosage: THERAPY DETAILS, ROUTE AND FORM CAPTURED AS PER PROTOCOL.
     Route: 048
  4. OXALIPLATIN [Suspect]
     Dosage: DOSE AND FREQUENCY AS PER PROTOCOL. LAST DOSE WAS TAKEN ON 20 NOV 2008.
     Route: 042
     Dates: start: 20081016

REACTIONS (3)
  - ABDOMINAL PAIN [None]
  - C-REACTIVE PROTEIN INCREASED [None]
  - PYREXIA [None]
